FAERS Safety Report 10128077 (Version 2)
Quarter: 2014Q2

REPORT INFORMATION
  Report Type: Report from Study
  Country: KR (occurrence: KR)
  Receive Date: 20140428
  Receipt Date: 20140502
  Transmission Date: 20141212
  Serious: Yes (Disabling)
  Sender: FDA-Public Use
  Company Number: KR-ROCHE-1386778

PATIENT
  Age: 44 Year
  Sex: Male

DRUGS (7)
  1. PEG-INTERFERON ALFA 2A [Suspect]
     Indication: CHRONIC HEPATITIS C
     Dosage: 4 UNIT
     Route: 058
     Dates: start: 20130326, end: 20130611
  2. RIBAVIRIN [Suspect]
     Indication: CHRONIC HEPATITIS C
     Route: 048
     Dates: start: 20130326, end: 20130617
  3. BLINDED DACLATASVIR [Suspect]
     Indication: CHRONIC HEPATITIS C
     Route: 048
     Dates: start: 20130326, end: 20130617
  4. BLINDED PEG-INTERFERON LAMBDA [Suspect]
     Indication: CHRONIC HEPATITIS C
     Route: 058
     Dates: start: 20130326, end: 20130611
  5. HYDROXYZINE HCL [Concomitant]
     Indication: PRURITUS
     Route: 065
     Dates: start: 20130521, end: 20130617
  6. PAROXETINE [Concomitant]
     Indication: DEPRESSED MOOD
     Route: 065
     Dates: start: 20130521, end: 20130617
  7. TRIAZOLAM [Concomitant]
     Indication: INSOMNIA
     Route: 065
     Dates: start: 20130521, end: 20130617

REACTIONS (1)
  - Anosmia [Not Recovered/Not Resolved]
